FAERS Safety Report 13183421 (Version 1)
Quarter: 2017Q1

REPORT INFORMATION
  Report Type: Spontaneous
  Country: GB (occurrence: GB)
  Receive Date: 20170203
  Receipt Date: 20170203
  Transmission Date: 20170428
  Serious: Yes (Hospitalization)
  Sender: FDA-Public Use
  Company Number: GB-ESPERO PHARMACEUTICALS-ESP201701-000009

PATIENT
  Age: 71 Year

DRUGS (8)
  1. ATORVASTATIN [Concomitant]
     Active Substance: ATORVASTATIN
  2. BISOPROLOL [Concomitant]
     Active Substance: BISOPROLOL
  3. NITROGLYCERIN. [Suspect]
     Active Substance: NITROGLYCERIN
     Route: 060
  4. ASPIRIN. [Concomitant]
     Active Substance: ASPIRIN
  5. LANSOPRAZOLE. [Concomitant]
     Active Substance: LANSOPRAZOLE
  6. TICAGRELOR [Concomitant]
     Active Substance: TICAGRELOR
  7. ISOSORBIDE MONONITRATE. [Concomitant]
     Active Substance: ISOSORBIDE MONONITRATE
  8. MACROGOL 4000 [Concomitant]
     Active Substance: POLYETHYLENE GLYCOL 4000
     Route: 048

REACTIONS (4)
  - Hypotension [Recovered/Resolved]
  - Circulatory collapse [Unknown]
  - Somnolence [Unknown]
  - Dizziness [Recovered/Resolved]
